FAERS Safety Report 19036385 (Version 1)
Quarter: 2021Q1

REPORT INFORMATION
  Report Type: Spontaneous
  Country: DE (occurrence: DE)
  Receive Date: 20210322
  Receipt Date: 20210322
  Transmission Date: 20210420
  Serious: Yes (Other)
  Sender: FDA-Public Use
  Company Number: DE-GLENMARK PHARMACEUTICALS-2021GMK052826

PATIENT

DRUGS (3)
  1. NEBIVOLOL GLENMARK 5MG TABLETTEN [Suspect]
     Active Substance: NEBIVOLOL
     Dosage: 1.25 MILLIGRAM, BID
     Route: 048
     Dates: start: 20210208, end: 202102
  2. NEBIVOLOL GLENMARK 5MG TABLETTEN [Suspect]
     Active Substance: NEBIVOLOL
     Dosage: 1.25 MILLIGRAM, OD
     Route: 048
     Dates: start: 20210222
  3. NEBIVOLOL GLENMARK 5MG TABLETTEN [Suspect]
     Active Substance: NEBIVOLOL
     Indication: CARDIAC FAILURE CHRONIC
     Dosage: 1.25 MILLIGRAM, OD
     Route: 048
     Dates: start: 20210203, end: 202102

REACTIONS (5)
  - Arrhythmia [Not Recovered/Not Resolved]
  - Product use issue [Unknown]
  - Heart rate decreased [Not Recovered/Not Resolved]
  - Intentional product use issue [Unknown]
  - Hypotension [Not Recovered/Not Resolved]

NARRATIVE: CASE EVENT DATE: 20210203
